FAERS Safety Report 24618390 (Version 1)
Quarter: 2024Q4

REPORT INFORMATION
  Report Type: Spontaneous
  Country: US (occurrence: None)
  Receive Date: 20241113
  Receipt Date: 20241113
  Transmission Date: 20250115
  Serious: Yes (Hospitalization)
  Sender: Public
  Company Number: None

PATIENT
  Sex: Female

DRUGS (1)
  1. LENALIDOMIDE [Suspect]
     Active Substance: LENALIDOMIDE
     Indication: Heart valve replacement
     Dosage: OTHER FREQUENCY : DAILY 21 DAYS ON THEN 14 DAYS OFF;?
     Route: 048
     Dates: start: 202403

REACTIONS (1)
  - Heart valve replacement [None]
